FAERS Safety Report 8988146 (Version 5)
Quarter: 2014Q4

REPORT INFORMATION
  Report Type: Spontaneous
  Country: US (occurrence: US)
  Receive Date: 20121227
  Receipt Date: 20141226
  Transmission Date: 20150529
  Serious: Yes (Other)
  Sender: FDA-Public Use
  Company Number: US-009507513-1212USA009109

PATIENT
  Sex: Male

DRUGS (4)
  1. ZANAFLEX [Concomitant]
     Active Substance: TIZANIDINE HYDROCHLORIDE
     Dosage: UNK
     Dates: start: 1986
  2. PROPECIA [Suspect]
     Active Substance: FINASTERIDE
     Indication: ANDROGENETIC ALOPECIA
     Dosage: 1 MG, UNK
     Route: 048
     Dates: start: 200011, end: 2003
  3. PROPECIA [Suspect]
     Active Substance: FINASTERIDE
     Dosage: 1 UNK, UNK
     Route: 048
     Dates: start: 2009, end: 2011
  4. PROPECIA [Suspect]
     Active Substance: FINASTERIDE
     Dosage: 1 MG, UNK
     Route: 048
     Dates: start: 200509

REACTIONS (11)
  - Cognitive disorder [Not Recovered/Not Resolved]
  - Skin irritation [Unknown]
  - Erectile dysfunction [Not Recovered/Not Resolved]
  - Anxiety [Not Recovered/Not Resolved]
  - Back disorder [Unknown]
  - Sexual dysfunction [Not Recovered/Not Resolved]
  - Constipation [Unknown]
  - Arthritis [Unknown]
  - Pollakiuria [Unknown]
  - Glucose tolerance impaired [Unknown]
  - Bone graft [Unknown]

NARRATIVE: CASE EVENT DATE: 2000
